FAERS Safety Report 25028892 (Version 1)
Quarter: 2025Q1

REPORT INFORMATION
  Report Type: Spontaneous
  Country: IT (occurrence: IT)
  Receive Date: 20250302
  Receipt Date: 20250302
  Transmission Date: 20250408
  Serious: Yes (Other)
  Sender: ALEXION PHARMACEUTICALS
  Company Number: None

PATIENT
  Age: 62 Year

DRUGS (4)
  1. OLAPARIB [Suspect]
     Active Substance: OLAPARIB
     Indication: Ovarian cancer
  2. SIMVASTATIN [Concomitant]
     Active Substance: SIMVASTATIN
     Indication: Dyslipidaemia
  3. EDOXABAN [Concomitant]
     Active Substance: EDOXABAN
     Indication: Deep vein thrombosis
  4. CHOLECALCIFEROL [Concomitant]
     Active Substance: CHOLECALCIFEROL
     Indication: Vitamin D deficiency

REACTIONS (4)
  - Asthenia [Recovered/Resolved]
  - Nail dystrophy [Recovered/Resolved]
  - Paraesthesia [Recovered/Resolved]
  - Abdominal distension [Recovered/Resolved]
